FAERS Safety Report 16821595 (Version 1)
Quarter: 2019Q3

REPORT INFORMATION
  Report Type: Spontaneous
  Country: IL (occurrence: IL)
  Receive Date: 20190918
  Receipt Date: 20190918
  Transmission Date: 20191005
  Serious: Yes (Hospitalization)
  Sender: FDA-Public Use
  Company Number: IL-ACTELION-A-CH2019-191508

PATIENT
  Age: 87 Year
  Sex: Female

DRUGS (7)
  1. UPTRAVI [Suspect]
     Active Substance: SELEXIPAG
     Indication: PULMONARY HYPERTENSION
     Dosage: 400 MCG, BID
     Route: 048
     Dates: start: 20190530
  2. UPTRAVI [Suspect]
     Active Substance: SELEXIPAG
     Dosage: 200 MCG, BID
     Route: 048
     Dates: start: 20190522, end: 20190530
  3. VITA CALCEA [Concomitant]
  4. ADEMPAS [Concomitant]
     Active Substance: RIOCIGUAT
  5. COUMADIN [Concomitant]
     Active Substance: WARFARIN SODIUM
  6. ALDACTONE [Concomitant]
     Active Substance: SPIRONOLACTONE
  7. LANTON [Concomitant]

REACTIONS (3)
  - Bladder catheterisation [Unknown]
  - Back pain [Unknown]
  - Urinary retention [Unknown]

NARRATIVE: CASE EVENT DATE: 20190907
